APPROVED DRUG PRODUCT: GENTAMICIN SULFATE IN SODIUM CHLORIDE 0.9% IN PLASTIC CONTAINER
Active Ingredient: GENTAMICIN SULFATE
Strength: EQ 1.4MG BASE/ML
Dosage Form/Route: INJECTABLE;INJECTION
Application: A062588 | Product #002
Applicant: HOSPIRA INC
Approved: Jan 6, 1986 | RLD: No | RS: No | Type: DISCN